FAERS Safety Report 5485217-X (Version None)
Quarter: 2007Q4

REPORT INFORMATION
  Report Type: 
  Country: None (occurrence: None)
  Receive Date: 20071010
  Receipt Date: 20071004
  Transmission Date: 20080405
  Serious: Yes (Other)
  Sender: FDA-Public Use
  Company Number: TCI2007A05352

PATIENT
  Age: 72 Year
  Sex: Female

DRUGS (3)
  1. LANSOPRAZOLE [Suspect]
     Indication: GASTROINTESTINAL HAEMORRHAGE
     Dosage: PER ORAL
     Route: 048
  2. LANSOPRAZOLE [Suspect]
     Indication: PROPHYLAXIS
     Dosage: PER ORAL
     Route: 048
  3. WARFARIN (WARFARIN POTASSIUM) (TABLETS) [Suspect]
     Dosage: 3 MG (3 MG, 1 D) PER ORAL; PER ORAL
     Route: 048

REACTIONS (3)
  - CARDIAC TAMPONADE [None]
  - DRUG INTERACTION POTENTIATION [None]
  - INTERNATIONAL NORMALISED RATIO INCREASED [None]
